FAERS Safety Report 25146986 (Version 1)
Quarter: 2025Q2

REPORT INFORMATION
  Report Type: Spontaneous
  Country: US (occurrence: US)
  Receive Date: 20250401
  Receipt Date: 20250401
  Transmission Date: 20250717
  Serious: No
  Sender: ELI LILLY AND CO
  Company Number: US-ELI_LILLY_AND_COMPANY-US202503024632

PATIENT
  Age: 6 Year
  Sex: Male
  Weight: 27.664 kg

DRUGS (1)
  1. HUMALOG [Suspect]
     Active Substance: INSULIN LISPRO
     Indication: Product used for unknown indication
     Route: 065

REACTIONS (11)
  - Burning sensation [Unknown]
  - Erythema [Unknown]
  - Inflammation [Unknown]
  - Acne [Unknown]
  - Blister [Unknown]
  - Dry skin [Unknown]
  - Scar [Unknown]
  - Pustule [Unknown]
  - Infection [Unknown]
  - Pruritus [Unknown]
  - Rash [Unknown]
